FAERS Safety Report 6346093-6 (Version None)
Quarter: 2009Q3

REPORT INFORMATION
  Report Type: 
  Country: None (occurrence: None)
  Receive Date: 20090909
  Receipt Date: 20090831
  Transmission Date: 20100115
  Serious: Yes (Other)
  Sender: FDA-Public Use
  Company Number: US-PFIZER INC-2005051676

PATIENT
  Sex: Female

DRUGS (10)
  1. PROVERA [Suspect]
     Indication: HORMONE REPLACEMENT THERAPY
     Dosage: UNK
     Route: 048
     Dates: start: 19870101, end: 19880101
  2. PREMARIN [Suspect]
     Indication: HORMONE REPLACEMENT THERAPY
     Dosage: UNK
     Route: 065
     Dates: start: 19870101, end: 19960101
  3. ESTRACE [Suspect]
     Indication: HORMONE REPLACEMENT THERAPY
     Dosage: UNK
     Route: 065
     Dates: start: 19960101, end: 20020101
  4. ESTRADIOL [Suspect]
     Indication: HORMONE REPLACEMENT THERAPY
     Dosage: UNK
     Route: 065
     Dates: start: 19960101, end: 20020101
  5. ASPIRIN [Concomitant]
     Indication: CEREBROVASCULAR ACCIDENT PROPHYLAXIS
     Dosage: UNK
     Dates: start: 20000101, end: 20040101
  6. TIAZAC [Concomitant]
     Indication: HYPERTENSION
     Dosage: UNK
     Dates: start: 19980101, end: 20050101
  7. ZIAC [Concomitant]
     Indication: HYPERTENSION
     Dosage: UNK
     Dates: start: 19980101, end: 20050101
  8. ZESTRIL [Concomitant]
     Indication: HYPERTENSION
     Dosage: UNK
     Dates: start: 19980101, end: 20050101
  9. FOSAMAX [Concomitant]
     Indication: BONE DENSITOMETRY
     Dosage: UNK
     Dates: start: 20000101, end: 20050101
  10. ELAVIL [Concomitant]
     Indication: ARTHRITIS
     Dosage: UNK
     Dates: start: 19950101

REACTIONS (1)
  - OVARIAN CANCER [None]
